FAERS Safety Report 8958639 (Version 1)
Quarter: 2012Q4

REPORT INFORMATION
  Report Type: Spontaneous
  Country: US (occurrence: None)
  Receive Date: 20121206
  Receipt Date: 20121206
  Transmission Date: 20130627
  Serious: Yes (Other)
  Sender: FDA-Public Use
  Company Number: None

PATIENT
  Age: 80 Year
  Sex: Male

DRUGS (2)
  1. ZYTIGA [Suspect]
     Indication: PROSTATE CANCER
     Dosage: 4 tabs once daily PO
     Route: 048
     Dates: start: 20120814, end: 20121109
  2. PREDNISONE [Concomitant]

REACTIONS (1)
  - Disease progression [None]
